FAERS Safety Report 20494727 (Version 2)
Quarter: 2022Q1

REPORT INFORMATION
  Report Type: Report from Study
  Country: CA (occurrence: CA)
  Receive Date: 20220221
  Receipt Date: 20220304
  Transmission Date: 20220423
  Serious: Yes (Hospitalization, Other)
  Sender: FDA-Public Use
  Company Number: CA-JNJFOC-20220237669

PATIENT
  Age: 41 Year
  Sex: Male
  Weight: 87 kg

DRUGS (2)
  1. REMICADE [Suspect]
     Active Substance: INFLIXIMAB
     Indication: Crohn^s disease
     Dosage: 10 MG/KG?ALSO RECEIVED ON 16-JAN-2019?LAST INFUSION ON 05-JAN-2022
     Route: 042
     Dates: start: 20131004
  2. ELASOMERAN [Suspect]
     Active Substance: ELASOMERAN
     Indication: Immunisation
     Route: 065

REACTIONS (9)
  - Blood pressure immeasurable [Unknown]
  - Asthenia [Unknown]
  - Dyspnoea [Unknown]
  - Campylobacter infection [Unknown]
  - Eye swelling [Unknown]
  - Muscle spasms [Unknown]
  - Migraine [Unknown]
  - Weight decreased [Unknown]
  - Decreased appetite [Unknown]

NARRATIVE: CASE EVENT DATE: 20220101
